FAERS Safety Report 24708821 (Version 3)
Quarter: 2025Q1

REPORT INFORMATION
  Report Type: Report from Study
  Country: US (occurrence: US)
  Receive Date: 20241207
  Receipt Date: 20250123
  Transmission Date: 20250409
  Serious: No
  Sender: GLAXOSMITHKLINE
  Company Number: US-GSK-US2024151329

PATIENT
  Age: 48 Year
  Sex: Female

DRUGS (1)
  1. MEPOLIZUMAB [Suspect]
     Active Substance: MEPOLIZUMAB
     Indication: Nasal polyps

REACTIONS (3)
  - Parosmia [Unknown]
  - Nasal congestion [Unknown]
  - Product dose omission issue [Unknown]

NARRATIVE: CASE EVENT DATE: 20240901
